FAERS Safety Report 9891928 (Version 1)
Quarter: 2014Q1

REPORT INFORMATION
  Report Type: Spontaneous
  Country: US (occurrence: US)
  Receive Date: 20140212
  Receipt Date: 20140212
  Transmission Date: 20141002
  Serious: Yes (Other)
  Sender: FDA-Public Use
  Company Number: US-TEVA-462204USA

PATIENT
  Age: 59 Year
  Sex: Female
  Weight: 81.72 kg

DRUGS (6)
  1. AZILECT [Suspect]
     Indication: PARKINSON^S DISEASE
     Dates: start: 2013, end: 201312
  2. SINEMET [Suspect]
  3. CLOZAPINE [Concomitant]
     Indication: SLEEP DISORDER
  4. TRIHEXANE [Concomitant]
     Indication: TREMOR
  5. ANTIDEPRESSANTS [Concomitant]
  6. ADVIL [Concomitant]

REACTIONS (9)
  - Abasia [Not Recovered/Not Resolved]
  - Speech disorder [Not Recovered/Not Resolved]
  - Pain in extremity [Not Recovered/Not Resolved]
  - Sleep terror [Not Recovered/Not Resolved]
  - Plantar fasciitis [Not Recovered/Not Resolved]
  - Slow speech [Not Recovered/Not Resolved]
  - Muscle rigidity [Not Recovered/Not Resolved]
  - Tremor [Not Recovered/Not Resolved]
  - Dyspepsia [Not Recovered/Not Resolved]
